FAERS Safety Report 8432197-0 (Version None)
Quarter: 2012Q2

REPORT INFORMATION
  Report Type: 
  Country: None (occurrence: None)
  Receive Date: 20120607
  Receipt Date: 20120525
  Transmission Date: 20120825
  Serious: Yes (Disabling)
  Sender: FDA-Public Use
  Company Number: 2012MA006709

PATIENT
  Age: 94 Year
  Sex: Female

DRUGS (15)
  1. SALMETEROL [Concomitant]
  2. SENNA-MINT WAF [Concomitant]
  3. TRIMETHOPRIM [Concomitant]
  4. MACROGOL 3350 [Concomitant]
  5. NITROFURANTOIN [Concomitant]
  6. CIPROFLOXACIN HYDROCHLORIDE [Concomitant]
  7. AQUEOUS CREAM [Concomitant]
  8. DOXYCYCLINE HYCLATE [Suspect]
     Dosage: 100 MG;QD;PO
     Route: 048
     Dates: start: 20120316
  9. LATANOPROST [Concomitant]
  10. ALBUTEROL [Concomitant]
  11. HYPROMELLOSE [Concomitant]
  12. CALCIUM CARBONATE [Concomitant]
  13. NITROFURANTOIN [Concomitant]
  14. ALENDRONATE SODIUM [Concomitant]
  15. ACETAMINOPHEN [Concomitant]

REACTIONS (2)
  - HYPOTENSION [None]
  - PRESYNCOPE [None]
